FAERS Safety Report 10149819 (Version 2)
Quarter: 2014Q3

REPORT INFORMATION
  Report Type: Report from Study
  Country: US (occurrence: US)
  Receive Date: 20140502
  Receipt Date: 20140804
  Transmission Date: 20150326
  Serious: Yes (Other)
  Sender: FDA-Public Use
  Company Number: US-SA-2014SA053719

PATIENT
  Age: 52 Year
  Sex: Female

DRUGS (3)
  1. METFORMIN [Suspect]
     Active Substance: METFORMIN HYDROCHLORIDE
     Indication: PRODUCT USED FOR UNKNOWN INDICATION
     Route: 065
  2. LANTUS [Suspect]
     Active Substance: INSULIN GLARGINE
     Indication: TYPE 2 DIABETES MELLITUS
     Dosage: DOSE:40 UNIT(S)
     Route: 065
     Dates: start: 2011
  3. LANTUS [Suspect]
     Active Substance: INSULIN GLARGINE
     Indication: ANXIETY
     Dosage: DOSE:40 UNIT(S)
     Route: 065
     Dates: start: 2011

REACTIONS (6)
  - Condition aggravated [Unknown]
  - Drug administration error [Unknown]
  - Eye operation [Unknown]
  - Asthenopia [Not Recovered/Not Resolved]
  - Blood glucose increased [Not Recovered/Not Resolved]
  - Retinal haemorrhage [Unknown]

NARRATIVE: CASE EVENT DATE: 20131220
